FAERS Safety Report 20057601 (Version 2)
Quarter: 2022Q3

REPORT INFORMATION
  Report Type: Report from Study
  Country: ZA (occurrence: ZA)
  Receive Date: 20211111
  Receipt Date: 20220913
  Transmission Date: 20221027
  Serious: Yes (Other)
  Sender: FDA-Public Use
  Company Number: ZA-NOVARTISPH-NVSC2020ZA290754

PATIENT
  Sex: Female

DRUGS (1)
  1. FINGOLIMOD HYDROCHLORIDE [Suspect]
     Active Substance: FINGOLIMOD HYDROCHLORIDE
     Indication: Relapsing-remitting multiple sclerosis
     Dosage: 0.5 MG, QD
     Route: 048
     Dates: start: 20191128

REACTIONS (12)
  - Visual acuity reduced [Unknown]
  - Vibration syndrome [Unknown]
  - Vibration test abnormal [Unknown]
  - Romberg test positive [Unknown]
  - Blood cholesterol increased [Unknown]
  - Low density lipoprotein increased [Unknown]
  - Total cholesterol/HDL ratio decreased [Unknown]
  - Blood triglycerides increased [Unknown]
  - Visual impairment [Unknown]
  - Postural tremor [Unknown]
  - Gamma-glutamyltransferase increased [Unknown]
  - Fatigue [Recovering/Resolving]
